FAERS Safety Report 6046612-3 (Version None)
Quarter: 2009Q1

REPORT INFORMATION
  Report Type: 
  Country: None (occurrence: None)
  Receive Date: 20090122
  Receipt Date: 20090114
  Transmission Date: 20090719
  Serious: Yes (Death)
  Sender: FDA-Public Use
  Company Number: PHEH2009US00832

PATIENT

DRUGS (2)
  1. GLEEVEC [Suspect]
     Dosage: MATERNAL DOSE: 400 MG
     Route: 048
  2. PEPCID [Concomitant]
     Dosage: MATERNAL DOSE: 20 MG

REACTIONS (3)
  - DRUG EXPOSURE DURING PREGNANCY [None]
  - FOETAL HEART RATE ABNORMAL [None]
  - INTRA-UTERINE DEATH [None]
